FAERS Safety Report 4505619-5 (Version None)
Quarter: 2004Q4

REPORT INFORMATION
  Report Type: 
  Country: None (occurrence: None)
  Receive Date: 20041119
  Receipt Date: 20041111
  Transmission Date: 20050328
  Serious: Yes (Other)
  Sender: FDA-Public Use
  Company Number: AU-JNJFOC-20041103805

PATIENT
  Age: 75 Year
  Sex: Female

DRUGS (6)
  1. CLADRIBINE [Suspect]
     Indication: NON-HODGKIN'S LYMPHOMA
     Dosage: X 3 DAYS
  2. MABTHERA [Suspect]
     Indication: NON-HODGKIN'S LYMPHOMA
  3. ALLOPURINOL [Concomitant]
  4. TEMAZEPAM [Concomitant]
  5. PARACETAMOL/CODEINE [Concomitant]
  6. PARACETAMOL/CODEINE [Concomitant]

REACTIONS (5)
  - ACUTE RESPIRATORY FAILURE [None]
  - BLOOD PH INCREASED [None]
  - EMPHYSEMA [None]
  - PNEUMONITIS [None]
  - PULMONARY TOXICITY [None]
